FAERS Safety Report 23124507 (Version 1)
Quarter: 2023Q4

REPORT INFORMATION
  Report Type: Spontaneous
  Country: BE (occurrence: BE)
  Receive Date: 20231030
  Receipt Date: 20231030
  Transmission Date: 20240110
  Serious: Yes (Hospitalization)
  Sender: FDA-Public Use
  Company Number: BE-EORTC-004961

PATIENT
  Age: 71 Year
  Sex: Male
  Weight: 58 kg

DRUGS (3)
  1. PACLITAXEL [Suspect]
     Active Substance: PACLITAXEL
     Indication: Squamous cell carcinoma of head and neck
     Dosage: 130.3 MILLIGRAM, QW
     Route: 042
     Dates: start: 20230906
  2. IBRANCE [Concomitant]
     Active Substance: PALBOCICLIB
     Indication: Squamous cell carcinoma of head and neck
     Dosage: 125 MILLIGRAM, QD
     Route: 048
     Dates: end: 20230815
  3. IBRANCE [Concomitant]
     Active Substance: PALBOCICLIB
     Dosage: 125 MILLIGRAM, QD
     Route: 048
     Dates: start: 20230726

REACTIONS (1)
  - Pyrexia [Recovered/Resolved]

NARRATIVE: CASE EVENT DATE: 20230909
